FAERS Safety Report 7142049-4 (Version None)
Quarter: 2010Q4

REPORT INFORMATION
  Report Type: 
  Country: None (occurrence: None)
  Receive Date: 20101207
  Receipt Date: 20101202
  Transmission Date: 20110411
  Serious: Yes (Other)
  Sender: FDA-Public Use
  Company Number: B0686974A

PATIENT
  Age: 80 Year
  Sex: Female

DRUGS (1)
  1. LAMICTAL [Suspect]
     Dosage: 25MG PER DAY
     Route: 048
     Dates: start: 20101022, end: 20101110

REACTIONS (6)
  - CONJUNCTIVITIS [None]
  - GENERAL PHYSICAL HEALTH DETERIORATION [None]
  - ORAL MUCOSAL ERUPTION [None]
  - RASH [None]
  - RASH MACULAR [None]
  - TOXIC SKIN ERUPTION [None]
